FAERS Safety Report 18129790 (Version 1)
Quarter: 2020Q3

REPORT INFORMATION
  Report Type: Spontaneous
  Country: US (occurrence: US)
  Receive Date: 20200810
  Receipt Date: 20200810
  Transmission Date: 20201103
  Serious: No
  Sender: FDA-Public Use
  Company Number: US-PERRIGO-19US012210

PATIENT
  Age: 68 Year
  Sex: Female
  Weight: 66.67 kg

DRUGS (17)
  1. LORATADINE. [Suspect]
     Active Substance: LORATADINE
     Indication: INFLUENZA
     Dosage: 10 MG, 5 TO 6 TIMES DAILY
     Route: 048
     Dates: start: 20191007, end: 20191008
  2. PRAVASTATIN. [Concomitant]
     Active Substance: PRAVASTATIN
     Indication: BLOOD CHOLESTEROL INCREASED
     Dosage: 20 MG, UNKNOWN
     Route: 065
     Dates: start: 2009
  3. KLONOPIN [Concomitant]
     Active Substance: CLONAZEPAM
     Indication: INSOMNIA
     Dosage: UNK
     Route: 065
  4. RANITIDINE. [Concomitant]
     Active Substance: RANITIDINE
     Indication: FLATULENCE
  5. LORATADINE. [Suspect]
     Active Substance: LORATADINE
     Indication: COUGH
  6. LORATADINE. [Suspect]
     Active Substance: LORATADINE
     Indication: OCULAR HYPERAEMIA
  7. LORATADINE. [Suspect]
     Active Substance: LORATADINE
     Indication: PERIORBITAL SWELLING
  8. DEPLIN [Concomitant]
     Active Substance: LEVOMEFOLATE CALCIUM
     Indication: PRODUCT USED FOR UNKNOWN INDICATION
     Dosage: 15 MG, UNKNOWN
     Route: 065
     Dates: start: 2017
  9. LORATADINE. [Suspect]
     Active Substance: LORATADINE
     Indication: SINUS CONGESTION
  10. LORATADINE. [Suspect]
     Active Substance: LORATADINE
     Indication: OROPHARYNGEAL DISCOMFORT
  11. VALBENAZINE [Suspect]
     Active Substance: VALBENAZINE
     Indication: TARDIVE DYSKINESIA
     Dosage: 80 MG, QD
     Route: 065
     Dates: start: 201909
  12. LORATADINE. [Suspect]
     Active Substance: LORATADINE
     Indication: RHINORRHOEA
     Dosage: 10 MG, TWICE IN A FEW HOURS
     Route: 048
     Dates: start: 20191009, end: 20191009
  13. LORATADINE. [Suspect]
     Active Substance: LORATADINE
     Indication: SNEEZING
  14. OXYBUTYNIN. [Concomitant]
     Active Substance: OXYBUTYNIN CHLORIDE
     Indication: URINARY INCONTINENCE
     Dosage: 5 MG, BID
     Route: 065
     Dates: start: 2018
  15. LORATADINE. [Suspect]
     Active Substance: LORATADINE
     Indication: SINUS HEADACHE
     Dosage: 10 MG, QD, PRN
     Route: 048
     Dates: start: 20191010
  16. RANITIDINE. [Concomitant]
     Active Substance: RANITIDINE
     Indication: GASTROOESOPHAGEAL REFLUX DISEASE
     Dosage: UNK
     Route: 065
     Dates: start: 2014
  17. LAMICTAL [Concomitant]
     Active Substance: LAMOTRIGINE
     Indication: AFFECTIVE DISORDER
     Dosage: 225 MG, BID
     Route: 048

REACTIONS (5)
  - Overdose [Recovered/Resolved]
  - Somnolence [Recovered/Resolved]
  - Chills [Recovered/Resolved]
  - Diarrhoea [Recovering/Resolving]
  - Off label use [Unknown]

NARRATIVE: CASE EVENT DATE: 20181009
